FAERS Safety Report 8600126-2 (Version None)
Quarter: 2012Q3

REPORT INFORMATION
  Report Type: 
  Country: None (occurrence: None)
  Receive Date: 20120817
  Receipt Date: 20120814
  Transmission Date: 20120928
  Serious: Yes (Other)
  Sender: FDA-Public Use
  Company Number: US-AMGEN-USASP2012051359

PATIENT
  Sex: Female

DRUGS (2)
  1. HERCEPTIN [Concomitant]
     Indication: BREAST CANCER METASTATIC
  2. NPLATE [Suspect]
     Indication: IDIOPATHIC THROMBOCYTOPENIC PURPURA
     Dosage: UNK
     Dates: end: 20120701

REACTIONS (1)
  - CHRONIC MYELOID LEUKAEMIA [None]
